FAERS Safety Report 6027925-8 (Version None)
Quarter: 2009Q1

REPORT INFORMATION
  Report Type: 
  Country: None (occurrence: None)
  Receive Date: 20090105
  Receipt Date: 20081226
  Transmission Date: 20090719
  Serious: Yes (Other)
  Sender: FDA-Public Use
  Company Number: PHHY2008BR33268

PATIENT
  Age: 75 Year
  Sex: Female

DRUGS (1)
  1. EXFORGE [Suspect]

REACTIONS (8)
  - ABDOMINAL PAIN [None]
  - FEELING ABNORMAL [None]
  - HAEMATEMESIS [None]
  - HAEMODIALYSIS [None]
  - NAUSEA [None]
  - OEDEMA PERIPHERAL [None]
  - PAIN [None]
  - VOMITING [None]
